FAERS Safety Report 6797369-X (Version None)
Quarter: 2010Q2

REPORT INFORMATION
  Report Type: 
  Country: None (occurrence: None)
  Receive Date: 20100623
  Receipt Date: 20100609
  Transmission Date: 20101027
  Serious: Yes (Hospitalization)
  Sender: FDA-Public Use
  Company Number: 002800

PATIENT
  Sex: Male

DRUGS (1)
  1. CIMZIA [Suspect]
     Indication: CROHN'S DISEASE
     Dosage: 400 MG 1X/ MONTH SUBCUTANEOUS
     Route: 058
     Dates: start: 20091105, end: 20091118

REACTIONS (1)
  - UNEVALUABLE EVENT [None]
